FAERS Safety Report 5609230-4 (Version None)
Quarter: 2008Q1

REPORT INFORMATION
  Report Type: 
  Country: None (occurrence: None)
  Receive Date: 20080131
  Receipt Date: 20080121
  Transmission Date: 20080703
  Serious: Yes (Hospitalization)
  Sender: FDA-Public Use
  Company Number: KR-ASTRAZENECA-2008AP00499

PATIENT
  Age: 24651 Day
  Sex: Male

DRUGS (3)
  1. IRESSA [Suspect]
     Indication: NON-SMALL CELL LUNG CANCER
     Route: 048
     Dates: start: 20070615, end: 20070912
  2. OXYCONTIN [Concomitant]
     Indication: ANALGESIA
     Route: 048
     Dates: start: 20050824
  3. MESULID [Concomitant]
     Indication: ANALGESIA
     Route: 048
     Dates: start: 20070907

REACTIONS (1)
  - PNEUMONIA [None]
